FAERS Safety Report 23165673 (Version 1)
Quarter: 2023Q4

REPORT INFORMATION
  Report Type: Spontaneous
  Country: NL (occurrence: NL)
  Receive Date: 20231109
  Receipt Date: 20231109
  Transmission Date: 20240110
  Serious: Yes (Life-Threatening, Hospitalization)
  Sender: FDA-Public Use
  Company Number: None

PATIENT
  Age: 11 Year
  Sex: Male
  Weight: 66 kg

DRUGS (6)
  1. ROCURONIUM [Interacting]
     Active Substance: ROCURONIUM BROMIDE
     Indication: Product used for unknown indication
     Dosage: 1 MILLIGRAM/KILOGRAM
     Route: 065
     Dates: start: 20230302
  2. SUGAMMADEX [Interacting]
     Active Substance: SUGAMMADEX
     Indication: Neuromuscular blockade
     Dosage: 2 MILLIGRAM/KILOGRAM
     Route: 065
     Dates: start: 20230302
  3. SEVOFLURANE [Concomitant]
     Active Substance: SEVOFLURANE
     Dosage: UNK (INHALATION GAS)
     Route: 065
  4. DICLOFENAC SODIUM [Concomitant]
     Active Substance: DICLOFENAC\DICLOFENAC SODIUM
     Dosage: 25 MG/ML (INJECTION LIQUID)
     Route: 065
  5. PROPOFOL [Concomitant]
     Active Substance: PROPOFOL
     Dosage: 10 MILLIGRAM PER MILLILITER (EMULSION FOR INJ)
     Route: 065
  6. ACETAMINOPHEN [Concomitant]
     Active Substance: ACETAMINOPHEN
     Dosage: 10 MG/ML (EMULSION FOR INJECTION)
     Route: 065

REACTIONS (2)
  - Anaphylactic reaction [Recovered/Resolved]
  - Drug interaction [Unknown]
